FAERS Safety Report 5903937-7 (Version None)
Quarter: 2008Q3

REPORT INFORMATION
  Report Type: 
  Country: None (occurrence: None)
  Receive Date: 20080930
  Receipt Date: 20080917
  Transmission Date: 20090109
  Serious: Yes (Other)
  Sender: FDA-Public Use
  Company Number: US-ELI_LILLY_AND_COMPANY-US200809004309

PATIENT
  Age: 11 Year
  Sex: Female

DRUGS (3)
  1. STRATTERA [Suspect]
     Indication: ATTENTION DEFICIT/HYPERACTIVITY DISORDER
     Dates: start: 20060101
  2. CONTRACEPTIVES NOS [Concomitant]
     Indication: CONTRACEPTION
  3. IRON [Concomitant]

REACTIONS (39)
  - ABDOMINAL DISTENSION [None]
  - ABDOMINAL PAIN [None]
  - ANAEMIA [None]
  - ANXIETY [None]
  - ASTHENIA [None]
  - DEPRESSED MOOD [None]
  - DRUG INEFFECTIVE [None]
  - DYSPEPSIA [None]
  - ERUCTATION [None]
  - ERYTHEMA [None]
  - FATIGUE [None]
  - FLUSHING [None]
  - GALLBLADDER DISORDER [None]
  - GASTRITIS [None]
  - GASTROENTERITIS [None]
  - GASTROOESOPHAGEAL REFLUX DISEASE [None]
  - GENERAL PHYSICAL HEALTH DETERIORATION [None]
  - HOT FLUSH [None]
  - HYPERHIDROSIS [None]
  - HYPERSENSITIVITY [None]
  - LETHARGY [None]
  - MENORRHAGIA [None]
  - MIGRAINE [None]
  - MOOD SWINGS [None]
  - MUSCLE SPASMS [None]
  - NAUSEA [None]
  - PRURITUS [None]
  - PYREXIA [None]
  - RASH [None]
  - RETCHING [None]
  - SLUGGISHNESS [None]
  - SYNCOPE [None]
  - THIRST [None]
  - THROMBOCYTOPENIA [None]
  - TREMOR [None]
  - URTICARIA [None]
  - VOMITING [None]
  - WEIGHT DECREASED [None]
  - WEIGHT INCREASED [None]
